FAERS Safety Report 9943297 (Version 6)
Quarter: 2015Q1

REPORT INFORMATION
  Report Type: Report from Study
  Country: CA (occurrence: CA)
  Receive Date: 20140303
  Receipt Date: 20150327
  Transmission Date: 20150721
  Serious: Yes (Hospitalization, Other)
  Sender: FDA-Public Use
  Company Number: PHHY2011CA95814

PATIENT
  Age: 79 Year
  Sex: Male

DRUGS (4)
  1. SANDOSTATIN LAR DEPOT [Suspect]
     Active Substance: OCTREOTIDE ACETATE
     Dosage: 30 MG, EVERY 3 WEEKS
     Route: 030
     Dates: start: 20130506
  2. COUMADINE [Concomitant]
     Active Substance: WARFARIN SODIUM
     Indication: ANTICOAGULANT THERAPY
     Route: 065
  3. SANDOSTATIN LAR DEPOT [Suspect]
     Active Substance: OCTREOTIDE ACETATE
     Indication: GASTRINOMA
     Dosage: 30 MG, QMO
     Route: 030
     Dates: start: 20110907
  4. WARFARIN [Concomitant]
     Active Substance: WARFARIN
     Indication: ANTICOAGULANT THERAPY
     Route: 065

REACTIONS (18)
  - Pain [Unknown]
  - Gait disturbance [Unknown]
  - Syncope [Unknown]
  - Dizziness [Unknown]
  - Blood pressure systolic increased [Unknown]
  - Injection site pain [Not Recovered/Not Resolved]
  - Head injury [Unknown]
  - Injection site mass [Unknown]
  - Pain in extremity [Recovered/Resolved]
  - Hypotension [Unknown]
  - Injection site haematoma [Unknown]
  - Injection site cyst [Unknown]
  - Injection site swelling [Unknown]
  - Fall [Unknown]
  - Back pain [Not Recovered/Not Resolved]
  - Abasia [Not Recovered/Not Resolved]
  - Hypokinesia [Not Recovered/Not Resolved]
  - Seroma [Unknown]

NARRATIVE: CASE EVENT DATE: 20130506
